FAERS Safety Report 7247826-7 (Version None)
Quarter: 2011Q1

REPORT INFORMATION
  Report Type: 
  Country: None (occurrence: None)
  Receive Date: 20110127
  Receipt Date: 20110120
  Transmission Date: 20110831
  Serious: Yes (Hospitalization, Other)
  Sender: FDA-Public Use
  Company Number: US-B.I. PHARMACEUTICALS,INC./RIDGEFIELD-2011-BP-01468BP

PATIENT
  Age: 60 Year
  Sex: Male

DRUGS (7)
  1. ASA [Concomitant]
     Indication: ANGINA PECTORIS
     Dates: start: 20060101, end: 20100801
  2. PRADAXA [Suspect]
     Indication: THROMBOSIS
     Dosage: 300 MG
     Route: 048
     Dates: start: 20101101, end: 20110111
  3. PLAVIX [Concomitant]
     Indication: ANGINA PECTORIS
     Dates: start: 20060101, end: 20100801
  4. LOVENOX [Suspect]
     Indication: THROMBOSIS
     Dates: start: 20110101
  5. CHEMO [Concomitant]
     Dates: start: 20100701, end: 20101201
  6. LOVENOX [Concomitant]
     Indication: PULMONARY EMBOLISM
     Dates: start: 20100801, end: 20101101
  7. CHEMO [Suspect]
     Indication: ADENOCARCINOMA
     Dates: start: 20110110

REACTIONS (5)
  - ACUTE MYOCARDIAL INFARCTION [None]
  - MYOCARDIAL INFARCTION [None]
  - RECTAL HAEMORRHAGE [None]
  - CHEST PAIN [None]
  - DYSPNOEA [None]
